FAERS Safety Report 5702517-6 (Version None)
Quarter: 2008Q2

REPORT INFORMATION
  Report Type: 
  Country: None (occurrence: None)
  Receive Date: 20080411
  Receipt Date: 20070226
  Transmission Date: 20081010
  Serious: No
  Sender: FDA-Public Use
  Company Number: US-ASTRAZENECA-2007UW03590

PATIENT
  Sex: Male

DRUGS (1)
  1. TENORMIN [Suspect]
     Indication: ANGINA UNSTABLE
     Route: 048
     Dates: start: 19970201

REACTIONS (1)
  - ANGINA PECTORIS [None]
